FAERS Safety Report 19650472 (Version 1)
Quarter: 2021Q3

REPORT INFORMATION
  Report Type: Spontaneous
  Country: US (occurrence: US)
  Receive Date: 20210802
  Receipt Date: 20210802
  Transmission Date: 20211014
  Serious: No
  Sender: FDA-Public Use
  Company Number: US-GALDERMA-US2021013760

PATIENT

DRUGS (4)
  1. PROACTIV POST ACNE SCAR GEL [Concomitant]
     Indication: INFLAMMATION
     Dosage: 1 DOSAGE FORM
     Route: 061
     Dates: start: 2021
  2. PROACTIV MD ADAPALENE ACNE TREATMENT [Suspect]
     Active Substance: ADAPALENE
     Indication: INFLAMMATION
     Dosage: 1 DOSAGE FORM
     Route: 061
     Dates: start: 2021
  3. PROACTIV MD DEEP CLEANSING FACE WASH [Concomitant]
     Active Substance: COSMETICS
     Indication: INFLAMMATION
     Dosage: 1 DOSAGE FORM
     Route: 061
     Dates: start: 2021
  4. PROACTIV MD DAILY OIL CONTROL SPF 30 [Suspect]
     Active Substance: AVOBENZONE\OCTISALATE\OCTOCRYLENE
     Indication: INFLAMMATION
     Dosage: 1 DOSAGE FORM, CUTANEOUS SOLUTION
     Route: 061
     Dates: start: 2021

REACTIONS (1)
  - Product use in unapproved indication [Recovered/Resolved]
